FAERS Safety Report 6247649-1 (Version None)
Quarter: 2009Q2

REPORT INFORMATION
  Report Type: 
  Country: None (occurrence: None)
  Receive Date: 20090626
  Receipt Date: 20090619
  Transmission Date: 20091009
  Serious: Yes (Hospitalization, Other)
  Sender: FDA-Public Use
  Company Number: CA-ELI_LILLY_AND_COMPANY-CA200906005529

PATIENT
  Age: 58 Year
  Sex: Male

DRUGS (4)
  1. FORTEO [Suspect]
     Indication: OSTEOPOROSIS
     Dosage: 20 UG, DAILY (1/D)
     Dates: start: 20081218
  2. MICARDIS [Concomitant]
  3. CALCIUM [Concomitant]
  4. VITAMIN D [Concomitant]

REACTIONS (4)
  - CEREBRAL HAEMORRHAGE [None]
  - COAGULOPATHY [None]
  - HEADACHE [None]
  - WEIGHT INCREASED [None]
